FAERS Safety Report 14984199 (Version 5)
Quarter: 2019Q3

REPORT INFORMATION
  Report Type: Report from Study
  Country: FR (occurrence: FR)
  Receive Date: 20180607
  Receipt Date: 20190805
  Transmission Date: 20191004
  Serious: Yes (Death, Other)
  Sender: FDA-Public Use
  Company Number: FR-JAZZ-2017-FR-015310

PATIENT

DRUGS (9)
  1. ICLUSIG [Suspect]
     Active Substance: PONATINIB
     Indication: ACUTE MYELOID LEUKAEMIA RECURRENT
     Dosage: 15 MG
     Route: 048
     Dates: start: 20160118, end: 20160121
  2. FLUCONAZOLE. [Concomitant]
     Active Substance: FLUCONAZOLE
     Indication: ANTIFUNGAL PROPHYLAXIS
     Dosage: 400 MG
     Route: 042
     Dates: start: 20151013, end: 20151027
  3. ZELITREX [Concomitant]
     Active Substance: VALACYCLOVIR HYDROCHLORIDE
     Indication: PROPHYLAXIS
     Dosage: 500 MG
     Route: 048
     Dates: start: 20151013, end: 20160212
  4. DEFITELIO [Suspect]
     Active Substance: DEFIBROTIDE SODIUM
     Indication: PROPHYLAXIS
  5. METRONIDAZOLE. [Concomitant]
     Active Substance: METRONIDAZOLE
     Indication: INFECTION PROPHYLAXIS
     Dosage: 1.5 G
     Route: 048
     Dates: start: 20151015, end: 20151026
  6. ALPRAZOLAM. [Concomitant]
     Active Substance: ALPRAZOLAM
     Indication: ANXIETY
     Dosage: 0.75 MG
     Route: 048
     Dates: start: 20151022, end: 20160212
  7. NEORAL [Concomitant]
     Active Substance: CYCLOSPORINE
     Indication: PROPHYLAXIS AGAINST GRAFT VERSUS HOST DISEASE
     Dosage: 300 MG
     Route: 048
     Dates: start: 20151105, end: 20151207
  8. CHOLURSO [Concomitant]
     Active Substance: URSODIOL
     Indication: PROPHYLAXIS
     Dosage: 1 G
     Route: 048
     Dates: start: 20151013, end: 20160111
  9. DEFITELIO [Suspect]
     Active Substance: DEFIBROTIDE SODIUM
     Indication: PROPHYLAXIS AGAINST GRAFT VERSUS HOST DISEASE
     Dosage: 18 MG/KG, QD
     Route: 042
     Dates: start: 20151020, end: 20151109

REACTIONS (8)
  - Acute myeloid leukaemia recurrent [Unknown]
  - Respiratory distress [Fatal]
  - Subdural haematoma [Unknown]
  - Off label use [Unknown]
  - Viral haemorrhagic cystitis [Recovered/Resolved]
  - Septic shock [Fatal]
  - Hypovolaemic shock [Fatal]
  - Hypotension [Recovered/Resolved]

NARRATIVE: CASE EVENT DATE: 20151020
